FAERS Safety Report 16118964 (Version 1)
Quarter: 2019Q1

REPORT INFORMATION
  Report Type: Spontaneous
  Country: US (occurrence: US)
  Receive Date: 20190326
  Receipt Date: 20190326
  Transmission Date: 20190418
  Serious: No
  Sender: FDA-Public Use
  Company Number: US-BAYER-2019-059755

PATIENT
  Age: 75 Year
  Sex: Female
  Weight: 81 kg

DRUGS (3)
  1. MIRALAX [Suspect]
     Active Substance: POLYETHYLENE GLYCOL 3350
     Indication: GASTROINTESTINAL DISORDER
     Dosage: 0.5 DF, QD
  2. MIRALAX [Suspect]
     Active Substance: POLYETHYLENE GLYCOL 3350
     Indication: GASTROINTESTINAL DISORDER
     Dosage: SOMETIMES TAKES FULL DOSE AND SOMETIMES
     Route: 048
     Dates: start: 2009, end: 201809
  3. COLACE [Concomitant]
     Active Substance: DOCUSATE SODIUM
     Indication: GASTROINTESTINAL DISORDER
     Dosage: 2 IN THE MORNING AND 2 AT NIGHTS
     Route: 048

REACTIONS (4)
  - Faeces soft [Unknown]
  - Product use in unapproved indication [Unknown]
  - Underdose [Unknown]
  - Off label use [Unknown]
